FAERS Safety Report 22646161 (Version 1)
Quarter: 2023Q2

REPORT INFORMATION
  Report Type: Spontaneous
  Country: US (occurrence: None)
  Receive Date: 20230626
  Receipt Date: 20230626
  Transmission Date: 20230722
  Serious: Yes (Other)
  Sender: FDA-Public Use
  Company Number: None

PATIENT
  Age: 13 Year
  Sex: Male
  Weight: 54 kg

DRUGS (2)
  1. .DELTA.9-TETRAHYDROCANNABINOL\HERBALS [Suspect]
     Active Substance: .DELTA.9-TETRAHYDROCANNABINOL\HERBALS
     Indication: Product used for unknown indication
     Route: 048
  2. DEVICE\UNSPECIFIED INGREDIENT [Suspect]
     Active Substance: DEVICE\UNSPECIFIED INGREDIENT
     Indication: Product used for unknown indication
     Dosage: OTHER QUANTITY : 4 INHALATION(S);?OTHER FREQUENCY : UNSURE;?
     Route: 055

REACTIONS (3)
  - Paranoia [None]
  - Panic attack [None]
  - Euphoric mood [None]

NARRATIVE: CASE EVENT DATE: 20230624
